FAERS Safety Report 5749169-7 (Version None)
Quarter: 2008Q2

REPORT INFORMATION
  Report Type: 
  Country: None (occurrence: None)
  Receive Date: 20080522
  Receipt Date: 20080505
  Transmission Date: 20081010
  Serious: Yes (Other)
  Sender: FDA-Public Use
  Company Number: 027418

PATIENT
  Age: 23 Year
  Sex: Female

DRUGS (5)
  1. AVIANE-21 [Suspect]
     Indication: ORAL CONTRACEPTION
     Dosage: TABLET QD, ORAL
     Route: 048
     Dates: start: 20080127
  2. AMOXICILLIN TRIHYDRATE [Suspect]
     Indication: RESPIRATORY TRACT INFECTION
     Dosage: 500 MG, TID, ORAL
     Route: 048
     Dates: start: 20080212, end: 20080222
  3. LEVONORGESTREL AND ETHINYL ESTRADIOL [Concomitant]
  4. LORAZEPAM [Concomitant]
  5. VENLAFAXINE HYDROCHLORIDE [Concomitant]

REACTIONS (4)
  - DRUG INTERACTION [None]
  - MENSTRUATION DELAYED [None]
  - METRORRHAGIA [None]
  - RESPIRATORY TRACT INFECTION [None]
